FAERS Safety Report 23369564 (Version 2)
Quarter: 2024Q1

REPORT INFORMATION
  Report Type: Report from Study
  Country: GB (occurrence: GB)
  Receive Date: 20240105
  Receipt Date: 20240311
  Transmission Date: 20240410
  Serious: Yes (Other)
  Sender: FDA-Public Use
  Company Number: GB-002147023-NVSC2024GB001485

PATIENT
  Sex: Male

DRUGS (1)
  1. COSENTYX [Suspect]
     Active Substance: SECUKINUMAB
     Indication: Ankylosing spondylitis
     Dosage: 150 MG (ON WEEKS 0,1,2,3 AND 4 FOLLOWED BY ONCE MONTHLY)
     Route: 058
     Dates: start: 202311

REACTIONS (1)
  - Alanine aminotransferase increased [Unknown]
